FAERS Safety Report 8524271-5 (Version None)
Quarter: 2012Q3

REPORT INFORMATION
  Report Type: 
  Country: None (occurrence: None)
  Receive Date: 20120720
  Receipt Date: 20120521
  Transmission Date: 20120928
  Serious: Yes (Hospitalization)
  Sender: FDA-Public Use
  Company Number: US-EISAI INC-E2020-11061-SPO-US

PATIENT
  Age: 63 Year
  Sex: Male

DRUGS (3)
  1. DONEPEZIL HCL [Suspect]
     Dosage: UNKNOWN
     Route: 048
  2. GALANTAMINE HYDROBROMIDE [Suspect]
     Dosage: LOWER DOSE, INCREASED AS TOLERATED TO A MID DOSE
  3. GALANTAMINE HYDROBROMIDE [Suspect]
     Dosage: UNKNOWN

REACTIONS (1)
  - POST-TRAUMATIC STRESS DISORDER [None]
